FAERS Safety Report 13905166 (Version 1)
Quarter: 2017Q3

REPORT INFORMATION
  Report Type: Spontaneous
  Country: US (occurrence: None)
  Receive Date: 20170821
  Receipt Date: 20170821
  Transmission Date: 20171127
  Serious: Yes (Hospitalization)
  Sender: FDA-Public Use
  Company Number: None

PATIENT
  Age: 78 Year
  Sex: Male

DRUGS (1)
  1. WARFARIN [Suspect]
     Active Substance: WARFARIN
     Indication: ATRIAL FIBRILLATION
     Route: 048
     Dates: start: 20120329, end: 20170512

REACTIONS (4)
  - Epistaxis [None]
  - Myocardial infarction [None]
  - Anaemia [None]
  - Haematoma [None]

NARRATIVE: CASE EVENT DATE: 20170505
